FAERS Safety Report 6721531-5 (Version None)
Quarter: 2010Q2

REPORT INFORMATION
  Report Type: 
  Country: None (occurrence: None)
  Receive Date: 20100512
  Receipt Date: 20100429
  Transmission Date: 20101027
  Serious: Yes (Hospitalization)
  Sender: FDA-Public Use
  Company Number: AU-ELI_LILLY_AND_COMPANY-AU201004003008

PATIENT
  Sex: Male
  Weight: 100 kg

DRUGS (17)
  1. PEMETREXED [Suspect]
     Indication: NON-SMALL CELL LUNG CANCER STAGE III
     Dosage: 1100 MG/M2, ON DAYS 1, 22 AND 43
     Route: 042
     Dates: start: 20091214, end: 20100125
  2. PEMETREXED [Suspect]
     Dosage: 1100 MG, ONCE EVERY 21 DAYS 4 CYCLES
     Route: 042
     Dates: start: 20100301
  3. PEMETREXED [Suspect]
     Dosage: 825 MG, UNK
     Route: 042
     Dates: end: 20100412
  4. PEMETREXED [Suspect]
     Dosage: UNK, UNK
     Dates: start: 20100419
  5. CISPLATIN [Suspect]
     Indication: NON-SMALL CELL LUNG CANCER STAGE III
     Dosage: 165 MG, DAY 1,22,43
     Route: 042
     Dates: start: 20091214, end: 20100125
  6. RADIATION [Suspect]
     Indication: NON-SMALL CELL LUNG CANCER STAGE III
     Dosage: 66 GY IN 33 FRACTIONS
     Dates: start: 20091214, end: 20100203
  7. FOLIC ACID [Concomitant]
     Indication: PROPHYLAXIS
     Dates: start: 20091208
  8. VITAMIN B-12 [Concomitant]
     Indication: PROPHYLAXIS
     Dates: start: 20091208
  9. DEXAMETHASONE [Concomitant]
     Indication: PROPHYLAXIS
     Dates: start: 20091213
  10. SPIRIVA [Concomitant]
     Indication: EMPHYSEMA
     Dates: start: 20030101
  11. VENTOLIN                                /SCH/ [Concomitant]
     Indication: ASTHMA
     Dates: start: 19890101
  12. SYMBICORT [Concomitant]
     Indication: ASTHMA
     Dates: start: 20030101
  13. CELEBREX [Concomitant]
     Indication: OSTEOARTHRITIS
     Dates: start: 19990101
  14. FLOMAXTRA [Concomitant]
     Indication: BENIGN PROSTATIC HYPERPLASIA
     Dates: start: 20040101
  15. NEXIUM [Concomitant]
     Indication: GASTROOESOPHAGEAL REFLUX DISEASE
     Dates: start: 20040101
  16. ACETAMINOPHEN AND CODEINE PHOSPHATE [Concomitant]
     Indication: PAIN
     Dates: start: 20030101
  17. COLOXYL WITH SENNA [Concomitant]
     Indication: CONSTIPATION
     Dates: start: 20090101

REACTIONS (1)
  - RADIATION PNEUMONITIS [None]
